FAERS Safety Report 5797863-4 (Version None)
Quarter: 2008Q3

REPORT INFORMATION
  Report Type: 
  Country: None (occurrence: None)
  Receive Date: 20080702
  Receipt Date: 20080626
  Transmission Date: 20090109
  Serious: Yes (Hospitalization)
  Sender: FDA-Public Use
  Company Number: FR-BAYER-200814409GPV

PATIENT
  Age: 52 Year
  Sex: Female

DRUGS (8)
  1. SORAFENIB [Suspect]
     Indication: BREAST CANCER METASTATIC
     Dosage: TOTAL DAILY DOSE: 800 MG  UNIT DOSE: 200 MG
     Route: 048
     Dates: start: 20080220, end: 20080227
  2. SORAFENIB [Suspect]
     Route: 048
  3. XELODA [Suspect]
     Indication: BREAST CANCER METASTATIC
     Dosage: TOTAL DAILY DOSE: 3650 MG
     Route: 048
     Dates: start: 20080221, end: 20080227
  4. XELODA [Suspect]
     Route: 048
  5. LEXOMIL [Concomitant]
     Indication: INSOMNIA
     Route: 065
  6. LYRICA [Concomitant]
     Indication: PAIN
     Route: 048
  7. OXYCONTIN [Concomitant]
     Indication: PAIN
     Route: 048
  8. OXYNORM [Concomitant]
     Indication: PAIN
     Route: 048

REACTIONS (1)
  - COGNITIVE DISORDER [None]
